FAERS Safety Report 6839695-1 (Version None)
Quarter: 2010Q3

REPORT INFORMATION
  Report Type: 
  Country: None (occurrence: None)
  Receive Date: 20100714
  Receipt Date: 20100708
  Transmission Date: 20110219
  Serious: Yes (Other)
  Sender: FDA-Public Use
  Company Number: MX-BRISTOL-MYERS SQUIBB COMPANY-15185200

PATIENT
  Age: 61 Year
  Sex: Male
  Weight: 89 kg

DRUGS (2)
  1. APROVEL TABS 150 MG [Suspect]
     Indication: HYPERTENSION
     Dosage: 1TAB
     Route: 048
     Dates: start: 20070101
  2. OMEPRAZOLE [Concomitant]
     Indication: GASTROOESOPHAGEAL REFLUX DISEASE
     Dosage: TABS
     Route: 048
     Dates: start: 20080101

REACTIONS (2)
  - BLOOD PRESSURE INCREASED [None]
  - TRANSIENT ISCHAEMIC ATTACK [None]
